FAERS Safety Report 13571847 (Version 1)
Quarter: 2017Q2

REPORT INFORMATION
  Report Type: Spontaneous
  Country: US (occurrence: US)
  Receive Date: 20170523
  Receipt Date: 20170523
  Transmission Date: 20170830
  Serious: Yes (Hospitalization)
  Sender: FDA-Public Use
  Company Number: US-CPL-000006

PATIENT
  Age: 40 Year
  Sex: Female

DRUGS (1)
  1. ACICLOVIR [Suspect]
     Active Substance: ACYCLOVIR
     Indication: HERPES SIMPLEX ENCEPHALITIS
     Dosage: THREE-WEEK COURSE

REACTIONS (3)
  - Cerebral haemorrhage [Unknown]
  - Mental status changes [Unknown]
  - Hemiparesis [Unknown]
